FAERS Safety Report 4886858-0 (Version None)
Quarter: 2006Q1

REPORT INFORMATION
  Report Type: 
  Country: None (occurrence: None)
  Receive Date: 20060119
  Receipt Date: 20060109
  Transmission Date: 20060701
  Serious: Yes (Other)
  Sender: FDA-Public Use
  Company Number: 2006005563

PATIENT
  Sex: Female

DRUGS (1)
  1. PROVERA [Suspect]
     Indication: ILL-DEFINED DISORDER
     Dosage: (5 MG,), ORAL
     Route: 048

REACTIONS (1)
  - IRON DEFICIENCY [None]
